FAERS Safety Report 10405148 (Version 3)
Quarter: 2014Q3

REPORT INFORMATION
  Report Type: Spontaneous
  Country: US (occurrence: None)
  Receive Date: 20140820
  Receipt Date: 20140910
  Transmission Date: 20150326
  Serious: Yes (Other)
  Sender: FDA-Public Use
  Company Number: ADR-2014-01458

PATIENT
  Age: 60 Year
  Sex: Male

DRUGS (4)
  1. MORPHINE (UNKNOWN) [Suspect]
     Active Substance: MORPHINE
  2. BUPIVACAINE [Suspect]
     Active Substance: BUPIVACAINE
  3. MORPHINE [Suspect]
     Active Substance: MORPHINE
  4. BACLOFEN INTRATHECAL [Suspect]
     Active Substance: BACLOFEN

REACTIONS (6)
  - Neck pain [None]
  - Chills [None]
  - Withdrawal syndrome [None]
  - Sneezing [None]
  - Therapy change [None]
  - Feeling hot [None]

NARRATIVE: CASE EVENT DATE: 20140804
